FAERS Safety Report 14562715 (Version 1)
Quarter: 2018Q1

REPORT INFORMATION
  Report Type: Spontaneous
  Country: IN (occurrence: IN)
  Receive Date: 20180222
  Receipt Date: 20180222
  Transmission Date: 20180509
  Serious: Yes (Disabling)
  Sender: FDA-Public Use
  Company Number: IN-ACS-001004

PATIENT
  Age: 12 Month
  Sex: Male

DRUGS (1)
  1. CEFTRIAXONE. [Suspect]
     Active Substance: CEFTRIAXONE
     Indication: RESPIRATORY TRACT INFECTION
     Route: 030

REACTIONS (3)
  - Medication error [Unknown]
  - Peripheral artery thrombosis [Recovered/Resolved with Sequelae]
  - Dry gangrene [Recovered/Resolved with Sequelae]
